FAERS Safety Report 9880480 (Version 1)
Quarter: 2014Q1

REPORT INFORMATION
  Report Type: Spontaneous
  Country: ES (occurrence: ES)
  Receive Date: 20140207
  Receipt Date: 20140207
  Transmission Date: 20141002
  Serious: Yes (Other)
  Sender: FDA-Public Use
  Company Number: ES-JNJFOC-20140200694

PATIENT
  Age: 86 Year
  Sex: Female

DRUGS (3)
  1. DUROGESIC [Suspect]
     Indication: SCIATICA
     Route: 062
     Dates: start: 20131216, end: 20140103
  2. DUROGESIC [Suspect]
     Indication: SCIATICA
     Route: 062
     Dates: start: 20131201, end: 20131215
  3. ESOMEPRAZOLE W/NAPROXEN [Suspect]
     Indication: PRODUCT USED FOR UNKNOWN INDICATION
     Route: 065

REACTIONS (2)
  - Iron deficiency anaemia [Unknown]
  - Confusional state [Recovered/Resolved]
